FAERS Safety Report 8450213-7 (Version None)
Quarter: 2012Q2

REPORT INFORMATION
  Report Type: 
  Country: None (occurrence: None)
  Receive Date: 20120614
  Receipt Date: 20120614
  Transmission Date: 20120825
  Serious: Yes (Other)
  Sender: FDA-Public Use
  Company Number: None

PATIENT
  Sex: Male

DRUGS (1)
  1. SUPREP BOWEL PREP KIT [Suspect]
     Indication: COLONOSCOPY
     Dosage: 177ML TWICE PO
     Route: 048
     Dates: start: 20120612, end: 20120612

REACTIONS (2)
  - EYE HAEMORRHAGE [None]
  - VOMITING [None]
